FAERS Safety Report 19419077 (Version 1)
Quarter: 2021Q2

REPORT INFORMATION
  Report Type: Spontaneous
  Country: CA (occurrence: CA)
  Receive Date: 20210615
  Receipt Date: 20210615
  Transmission Date: 20210717
  Serious: Yes (Hospitalization, Other)
  Sender: FDA-Public Use
  Company Number: CA-OTSUKA-2021_020120

PATIENT
  Age: 38 Year
  Sex: Male

DRUGS (2)
  1. CIPRALEX [Suspect]
     Active Substance: ESCITALOPRAM OXALATE
     Indication: ANXIETY
     Dosage: UNK
     Route: 048
  2. ABILIFY [Suspect]
     Active Substance: ARIPIPRAZOLE
     Indication: ANXIETY
     Dosage: UNK
     Route: 048

REACTIONS (6)
  - Emotional poverty [Recovering/Resolving]
  - Product use in unapproved indication [Unknown]
  - Akathisia [Recovering/Resolving]
  - Night sweats [Recovering/Resolving]
  - Insomnia [Recovering/Resolving]
  - Sexual dysfunction [Recovering/Resolving]
